FAERS Safety Report 16683955 (Version 1)
Quarter: 2019Q3

REPORT INFORMATION
  Report Type: Spontaneous
  Country: HR (occurrence: HR)
  Receive Date: 20190808
  Receipt Date: 20190808
  Transmission Date: 20191004
  Serious: Yes (Hospitalization)
  Sender: FDA-Public Use
  Company Number: HR-ELI_LILLY_AND_COMPANY-HR201907015744

PATIENT
  Age: 66 Year
  Sex: Female
  Weight: 84 kg

DRUGS (1)
  1. TRULICITY [Suspect]
     Active Substance: DULAGLUTIDE
     Indication: TYPE 2 DIABETES MELLITUS
     Dosage: 1.5 MG, WEEKLY (1/W)
     Route: 058
     Dates: start: 20190717

REACTIONS (6)
  - Nausea [Recovered/Resolved]
  - Amylase increased [Unknown]
  - Pain [Recovered/Resolved]
  - Vomiting [Recovered/Resolved]
  - Abdominal pain upper [Recovered/Resolved]
  - Lipase increased [Unknown]

NARRATIVE: CASE EVENT DATE: 20190719
